FAERS Safety Report 10521746 (Version 1)
Quarter: 2014Q4

REPORT INFORMATION
  Report Type: Spontaneous
  Country: US (occurrence: US)
  Receive Date: 20141016
  Receipt Date: 20141016
  Transmission Date: 20150528
  Serious: Yes (Life-Threatening, Hospitalization, Other)
  Sender: FDA-Public Use
  Company Number: PHHY2014US132957

PATIENT
  Age: 65 Year
  Sex: Female

DRUGS (8)
  1. RIBAVIRIN. [Suspect]
     Active Substance: RIBAVIRIN
     Indication: CHRONIC HEPATITIS C
     Route: 065
  2. TELAPREVIR [Suspect]
     Active Substance: TELAPREVIR
     Indication: CHRONIC HEPATITIS C
     Route: 065
  3. HYDROCHLOROTHIAZIDE. [Suspect]
     Active Substance: HYDROCHLOROTHIAZIDE
     Indication: HYPERTENSION
     Route: 065
  4. METFORMIN [Suspect]
     Active Substance: METFORMIN HYDROCHLORIDE
     Indication: TYPE 2 DIABETES MELLITUS
     Route: 065
  5. PROCRIT//EPOETIN ALFA [Concomitant]
     Indication: ANAEMIA
     Route: 065
  6. LISINOPRIL. [Suspect]
     Active Substance: LISINOPRIL
     Indication: HYPERTENSION
     Route: 065
  7. PEGINTERFERON ALFA-2A [Suspect]
     Active Substance: PEGINTERFERON ALFA-2A
     Indication: CHRONIC HEPATITIS C
     Route: 065
  8. LASIX [Suspect]
     Active Substance: FUROSEMIDE
     Indication: TYPE 2 DIABETES MELLITUS
     Route: 065

REACTIONS (17)
  - Fatigue [Unknown]
  - Deafness [Unknown]
  - Drug reaction with eosinophilia and systemic symptoms [Unknown]
  - Weight increased [Unknown]
  - Pyrexia [Recovered/Resolved]
  - Nausea [Unknown]
  - Rash [Recovering/Resolving]
  - Face oedema [Recovered/Resolved]
  - Diarrhoea [Unknown]
  - Dermatitis [Unknown]
  - Rash pruritic [Unknown]
  - Lymphadenopathy [Unknown]
  - Perivascular dermatitis [Unknown]
  - Rash maculo-papular [Unknown]
  - Eczema [Unknown]
  - Oedema peripheral [Recovered/Resolved]
  - Acute kidney injury [Recovered/Resolved]
